FAERS Safety Report 24746610 (Version 1)
Quarter: 2024Q4

REPORT INFORMATION
  Report Type: Spontaneous
  Country: US (occurrence: US)
  Receive Date: 20241218
  Receipt Date: 20241218
  Transmission Date: 20250115
  Serious: No
  Sender: PIRAMAL
  Company Number: US-PCCINC-2024-PPL-000916

PATIENT

DRUGS (1)
  1. GABLOFEN [Suspect]
     Active Substance: BACLOFEN
     Indication: Product used for unknown indication
     Dosage: 189.98 MICROGRAM/DAY
     Route: 037

REACTIONS (1)
  - Hypertonia [Unknown]

NARRATIVE: CASE EVENT DATE: 20240212
